FAERS Safety Report 17630087 (Version 1)
Quarter: 2020Q2

REPORT INFORMATION
  Report Type: Spontaneous
  Country: US (occurrence: US)
  Receive Date: 20200406
  Receipt Date: 20200406
  Transmission Date: 20200713
  Serious: No
  Sender: FDA-Public Use
  Company Number: US-AJANTA PHARMA USA INC.-2082381

PATIENT
  Age: 78 Year
  Sex: Female

DRUGS (1)
  1. DOXEPIN HYDROCHLORIDE (ANDA 212624) [Suspect]
     Active Substance: DOXEPIN HYDROCHLORIDE

REACTIONS (2)
  - Middle insomnia [Unknown]
  - Poor quality sleep [Unknown]
